FAERS Safety Report 25790791 (Version 1)
Quarter: 2025Q3

REPORT INFORMATION
  Report Type: Spontaneous
  Country: US (occurrence: US)
  Receive Date: 20250911
  Receipt Date: 20250911
  Transmission Date: 20251021
  Serious: Yes (Hospitalization, Other)
  Sender: TEVA
  Company Number: US-TEVA-VS-3368700

PATIENT
  Age: 30 Year

DRUGS (2)
  1. LORAZEPAM [Suspect]
     Active Substance: LORAZEPAM
     Indication: Suicide attempt
     Route: 048
  2. LITHIUM [Suspect]
     Active Substance: LITHIUM
     Indication: Bipolar disorder
     Route: 065

REACTIONS (2)
  - End stage renal disease [Unknown]
  - Suicide attempt [Unknown]
